FAERS Safety Report 12139923 (Version 2)
Quarter: 2016Q2

REPORT INFORMATION
  Report Type: Spontaneous
  Country: CA (occurrence: CA)
  Receive Date: 20160303
  Receipt Date: 20160608
  Transmission Date: 20160815
  Serious: Yes (Other)
  Sender: FDA-Public Use
  Company Number: CA-SA-2016SA036114

PATIENT
  Sex: Female

DRUGS (25)
  1. EZETROL [Concomitant]
     Active Substance: EZETIMIBE
     Route: 048
  2. EPIPEN [Concomitant]
     Active Substance: EPINEPHRINE
     Route: 065
  3. FERROUS FUMARATE [Concomitant]
     Active Substance: FERROUS FUMARATE
     Dosage: FREQUENCY: 2 EVERY 1 DAY
     Route: 065
  4. HYDROCHLOROTHIAZIDE. [Concomitant]
     Active Substance: HYDROCHLOROTHIAZIDE
     Route: 048
  5. SYNTHROID [Concomitant]
     Active Substance: LEVOTHYROXINE SODIUM
     Route: 065
  6. VITAMIN D [Concomitant]
     Active Substance: CHOLECALCIFEROL
     Dosage: FREQUENCY:1 EVERY 1 DAY
     Route: 065
  7. ZANTAC [Concomitant]
     Active Substance: RANITIDINE HYDROCHLORIDE
     Dosage: FREQUENCY: 2 EVERY 1 DAY
     Route: 065
  8. GLYBURIDE. [Suspect]
     Active Substance: GLYBURIDE
     Route: 065
  9. ASPIRIN. [Suspect]
     Active Substance: ASPIRIN
     Route: 065
  10. JANUMET [Suspect]
     Active Substance: METFORMIN HYDROCHLORIDE\SITAGLIPTIN PHOSPHATE
     Indication: TYPE 2 DIABETES MELLITUS
     Dosage: DOSE : 2 EVERY 1 DAY
     Route: 048
     Dates: end: 20150317
  11. NOVORAPID [Concomitant]
     Active Substance: INSULIN ASPART
     Dosage: FREQUENCY: 3 EVERY 1 DAY
     Route: 065
  12. INSULIN [Concomitant]
     Active Substance: INSULIN NOS
  13. LIPITOR [Concomitant]
     Active Substance: ATORVASTATIN CALCIUM
     Route: 065
  14. PANTOPRAZOLE MAGNESIUM [Concomitant]
     Active Substance: PANTOPRAZOLE MAGNESIUM
     Dosage: FREQUENCY: 2 EVERY 1 DAY
     Route: 065
  15. REACTINE [Concomitant]
     Active Substance: CETIRIZINE HYDROCHLORIDE
     Dosage: FREQUENCY: 1 EVERY 1 DAY
     Route: 065
  16. SOFLAX [Concomitant]
     Active Substance: DOCUSATE
     Dosage: FREQUENCY:2 EVERY 1 DAY
     Route: 065
  17. DILTIAZEM HYDROCHLORIDE. [Concomitant]
     Active Substance: DILTIAZEM HYDROCHLORIDE
     Dosage: FREQUENCY: 3 EVERY 1 DAY
     Route: 065
  18. CYANOCOBALAMIN. [Concomitant]
     Active Substance: CYANOCOBALAMIN
     Route: 065
  19. DOMPERIDONE [Concomitant]
     Active Substance: DOMPERIDONE
     Dosage: FREQUENCY: 3 EVERY 1 DAY
     Route: 065
  20. LANTUS [Concomitant]
     Active Substance: INSULIN GLARGINE
     Dosage: FORM: SOLUTION
     Route: 058
  21. SENOKOT [Concomitant]
     Active Substance: SENNOSIDES
     Route: 065
  22. AMOXICILLIN. [Suspect]
     Active Substance: AMOXICILLIN
     Route: 065
  23. LASIX [Concomitant]
     Active Substance: FUROSEMIDE
     Route: 065
  24. NITROGLYCERINE [Concomitant]
     Active Substance: NITROGLYCERIN
     Route: 065
  25. REACTINE [Concomitant]
     Active Substance: CETIRIZINE HYDROCHLORIDE
     Dosage: FREQUENCY:2 EVERY 1 DAY
     Route: 065

REACTIONS (8)
  - Chronic obstructive pulmonary disease [Unknown]
  - Rash [Unknown]
  - Abdominal discomfort [Unknown]
  - Chest pain [Unknown]
  - Hyperglycaemia [Unknown]
  - Atelectasis [Unknown]
  - Nausea [Unknown]
  - Angioedema [Not Recovered/Not Resolved]
